FAERS Safety Report 11861740 (Version 1)
Quarter: 2015Q4

REPORT INFORMATION
  Report Type: Spontaneous
  Country: US (occurrence: US)
  Receive Date: 20151222
  Receipt Date: 20151222
  Transmission Date: 20160305
  Serious: Yes (Life-Threatening)
  Sender: FDA-Public Use
  Company Number: PHHY2015US162832

PATIENT
  Age: 56 Year
  Sex: Female

DRUGS (1)
  1. AMITRIPTYLINE [Suspect]
     Active Substance: AMITRIPTYLINE
     Indication: SUICIDE ATTEMPT
     Route: 065

REACTIONS (8)
  - Atrioventricular block [Unknown]
  - Ventricular extrasystoles [Unknown]
  - Hypotension [Unknown]
  - Suicide attempt [Unknown]
  - Sinus bradycardia [Unknown]
  - Seizure [Recovered/Resolved]
  - Respiratory depression [Unknown]
  - Intentional overdose [Unknown]
